FAERS Safety Report 25508131 (Version 2)
Quarter: 2025Q3

REPORT INFORMATION
  Report Type: Spontaneous
  Country: EU (occurrence: EU)
  Receive Date: 20250703
  Receipt Date: 20250729
  Transmission Date: 20251021
  Serious: Yes (Other)
  Sender: MERZ
  Company Number: EU-Merz Pharmaceuticals GmbH-2025060000271

PATIENT

DRUGS (4)
  1. BOCOUTURE [Suspect]
     Active Substance: BOTULINUM TOXIN TYPE A
     Indication: Skin cosmetic procedure
     Dates: start: 20240614, end: 20240614
  2. BELOTERO INTENSE LIDOCAINE [Concomitant]
     Indication: Skin wrinkling
     Dosage: RETROTRACING
     Dates: start: 20240614, end: 20240614
  3. BELOTERO INTENSE LIDOCAINE [Concomitant]
     Indication: Skin wrinkling
  4. HYALURONIC ACID [Concomitant]
     Active Substance: HYALURONIC ACID
     Dates: start: 2023, end: 2023

REACTIONS (1)
  - Angioedema [Recovered/Resolved]

NARRATIVE: CASE EVENT DATE: 20240708
